FAERS Safety Report 20700627 (Version 4)
Quarter: 2022Q2

REPORT INFORMATION
  Report Type: Spontaneous
  Country: US (occurrence: US)
  Receive Date: 20220412
  Receipt Date: 20220624
  Transmission Date: 20220720
  Serious: Yes (Other)
  Sender: FDA-Public Use
  Company Number: US-PFIZER INC-202101022919

PATIENT
  Age: 75 Year
  Sex: Female

DRUGS (1)
  1. IBRANCE [Suspect]
     Active Substance: PALBOCICLIB
     Indication: Breast cancer metastatic
     Dosage: 125 MG
     Dates: start: 201912

REACTIONS (5)
  - Suicidal ideation [Unknown]
  - Onychoclasis [Unknown]
  - Nail cuticle fissure [Unknown]
  - Taste disorder [Unknown]
  - Ageusia [Unknown]
